FAERS Safety Report 15020273 (Version 1)
Quarter: 2018Q2

REPORT INFORMATION
  Report Type: Spontaneous
  Country: ZA (occurrence: ZA)
  Receive Date: 20180618
  Receipt Date: 20180618
  Transmission Date: 20180711
  Serious: Yes (Death)
  Sender: FDA-Public Use
  Company Number: ZA-DRREDDYS-SAF/SAF/18/0100222

PATIENT
  Age: 72 Year

DRUGS (8)
  1. CYMGEN [Suspect]
     Active Substance: DULOXETINE HYDROCHLORIDE
     Indication: DIABETIC NEUROPATHY
  2. ALTOSEC [Suspect]
     Active Substance: OMEPRAZOLE
     Indication: DUODENAL ULCER
  3. DOPAQUEL [Suspect]
     Active Substance: QUETIAPINE
     Indication: SCHIZOPHRENIA
     Route: 048
     Dates: start: 20170710
  4. CALCIFEROL [Suspect]
     Active Substance: ERGOCALCIFEROL
     Indication: PRODUCT USED FOR UNKNOWN INDICATION
     Route: 048
     Dates: start: 20170404
  5. DOPAQUEL [Suspect]
     Active Substance: QUETIAPINE
     Indication: BIPOLAR DISORDER
  6. ALTOSEC [Suspect]
     Active Substance: OMEPRAZOLE
     Indication: GASTRIC ULCER
     Route: 048
     Dates: start: 20170406
  7. DORMONOCT [Suspect]
     Active Substance: LOPRAZOLAM
     Indication: INSOMNIA
     Route: 048
     Dates: start: 20170406
  8. CYMGEN [Suspect]
     Active Substance: DULOXETINE HYDROCHLORIDE
     Indication: DEPRESSION
     Route: 048
     Dates: start: 20170404

REACTIONS (1)
  - Death [Fatal]

NARRATIVE: CASE EVENT DATE: 20170909
